FAERS Safety Report 17647294 (Version 14)
Quarter: 2021Q2

REPORT INFORMATION
  Report Type: Report from Study
  Country: US (occurrence: US)
  Receive Date: 20200409
  Receipt Date: 20210615
  Transmission Date: 20210716
  Serious: Yes (Death)
  Sender: FDA-Public Use
  Company Number: NVSC2020US095407

PATIENT
  Age: 9 Month
  Sex: Male
  Weight: 7.84 kg

DRUGS (2)
  1. ZOLGENSMA [Suspect]
     Active Substance: ONASEMNOGENE ABEPARVOVEC-XIOI
     Indication: SPINAL MUSCULAR ATROPHY
     Dosage: 33 ML, ONCE/SINGLE
     Route: 042
     Dates: start: 20200326, end: 20200326
  2. PREDNISOLONE. [Concomitant]
     Active Substance: PREDNISOLONE
     Indication: PRODUCT USED FOR UNKNOWN INDICATION
     Dosage: UNK
     Route: 065

REACTIONS (2)
  - Salivary hypersecretion [Not Recovered/Not Resolved]
  - Sudden death [Fatal]

NARRATIVE: CASE EVENT DATE: 20200912
